FAERS Safety Report 13029230 (Version 1)
Quarter: 2016Q4

REPORT INFORMATION
  Report Type: Spontaneous
  Country: US (occurrence: US)
  Receive Date: 20161215
  Receipt Date: 20161215
  Transmission Date: 20170207
  Serious: No
  Sender: FDA-Public Use
  Company Number: US-TEVA-707691USA

PATIENT
  Sex: Female

DRUGS (1)
  1. CLOBETASOL [Suspect]
     Active Substance: CLOBETASOL

REACTIONS (4)
  - Sensation of foreign body [Unknown]
  - Alopecia [Unknown]
  - Hypersensitivity [Unknown]
  - Pruritus [Unknown]
